FAERS Safety Report 24526620 (Version 1)
Quarter: 2024Q4

REPORT INFORMATION
  Report Type: Report from Study
  Country: US (occurrence: US)
  Receive Date: 20241021
  Receipt Date: 20241021
  Transmission Date: 20250115
  Serious: No
  Sender: ROCHE
  Company Number: US-ROCHE-2376482

PATIENT
  Age: 29 Year
  Sex: Female

DRUGS (4)
  1. ZELBORAF [Suspect]
     Active Substance: VEMURAFENIB
     Indication: Malignant nervous system neoplasm
     Dosage: ONGOING-UNKNOWN, 2 TAB EVERY 12 HOURS, UNTIL TUMOUR PROGRESSION
     Route: 048
  2. ZELBORAF [Suspect]
     Active Substance: VEMURAFENIB
     Indication: Brain neoplasm malignant
  3. ZELBORAF [Suspect]
     Active Substance: VEMURAFENIB
     Indication: Brain neoplasm
  4. BUSPIRONE [Concomitant]
     Active Substance: BUSPIRONE HYDROCHLORIDE

REACTIONS (3)
  - Rash [Unknown]
  - Off label use [Unknown]
  - Photosensitivity reaction [Unknown]
